FAERS Safety Report 21472107 (Version 1)
Quarter: 2022Q4

REPORT INFORMATION
  Report Type: Spontaneous
  Country: US (occurrence: US)
  Receive Date: 20221018
  Receipt Date: 20221018
  Transmission Date: 20230112
  Serious: Yes (Hospitalization)
  Sender: FDA-Public Use
  Company Number: US-PFIZER INC-202201232983

PATIENT
  Age: 74 Year
  Sex: Female
  Weight: 58.503 kg

DRUGS (1)
  1. DISOPYRAMIDE PHOSPHATE [Suspect]
     Active Substance: DISOPYRAMIDE PHOSPHATE
     Indication: Arrhythmia
     Dosage: UNK

REACTIONS (2)
  - Diarrhoea [Recovering/Resolving]
  - Weight decreased [Recovering/Resolving]

NARRATIVE: CASE EVENT DATE: 20220909
